FAERS Safety Report 6359836-2 (Version None)
Quarter: 2009Q3

REPORT INFORMATION
  Report Type: 
  Country: None (occurrence: None)
  Receive Date: 20090917
  Receipt Date: 20090911
  Transmission Date: 20100115
  Serious: Yes (Other)
  Sender: FDA-Public Use
  Company Number: A0807715A

PATIENT
  Age: 60 Year
  Sex: Female

DRUGS (3)
  1. TYKERB [Suspect]
     Dates: start: 20080301
  2. CAPECITABINE [Suspect]
     Dates: start: 20080301
  3. ZOLEDRONIC ACID [Concomitant]

REACTIONS (3)
  - GASTROINTESTINAL TOXICITY [None]
  - HAEMATOTOXICITY [None]
  - PALMAR-PLANTAR ERYTHRODYSAESTHESIA SYNDROME [None]
